FAERS Safety Report 10465389 (Version 1)
Quarter: 2014Q3

REPORT INFORMATION
  Report Type: Spontaneous
  Country: BR (occurrence: BR)
  Receive Date: 20140919
  Receipt Date: 20140919
  Transmission Date: 20150326
  Serious: Yes (Other)
  Sender: FDA-Public Use
  Company Number: BR-PFIZER INC-2014256016

PATIENT
  Age: 62 Year
  Sex: Female
  Weight: 71 kg

DRUGS (6)
  1. CELEBRA [Suspect]
     Active Substance: CELECOXIB
     Dosage: 200 MG, UNK
     Route: 048
     Dates: start: 2011
  2. AZUKON MR [Concomitant]
     Indication: DIABETES MELLITUS
     Dosage: UNK
  3. TRADJENTA [Concomitant]
     Active Substance: LINAGLIPTIN
     Indication: DIABETES MELLITUS
     Dosage: UNK
  4. GLIFAGE [Concomitant]
     Active Substance: METFORMIN HYDROCHLORIDE
     Indication: DIABETES MELLITUS
     Dosage: UNK
  5. BENERVA [Concomitant]
     Active Substance: THIAMINE
     Indication: DIABETES MELLITUS
     Dosage: UNK
  6. HYDROCHLOROTHIAZIDE/LOSARTAN [Concomitant]
     Indication: HYPERTENSION
     Dosage: UNK

REACTIONS (6)
  - Spinal pain [Not Recovered/Not Resolved]
  - Dysstasia [Unknown]
  - Peripheral swelling [Not Recovered/Not Resolved]
  - Spinal disorder [Unknown]
  - Monoplegia [Not Recovered/Not Resolved]
  - Pain in extremity [Not Recovered/Not Resolved]
